FAERS Safety Report 11168094 (Version 1)
Quarter: 2015Q2

REPORT INFORMATION
  Report Type: Spontaneous
  Country: US (occurrence: None)
  Receive Date: 20150604
  Receipt Date: 20150604
  Transmission Date: 20150821
  Serious: Yes (Other)
  Sender: FDA-Public Use
  Company Number: None

PATIENT
  Age: 47 Year
  Sex: Female
  Weight: 79.38 kg

DRUGS (1)
  1. KENALOG [Suspect]
     Active Substance: TRIAMCINOLONE ACETONIDE
     Indication: MULTIPLE ALLERGIES
     Route: 030

REACTIONS (5)
  - Unevaluable event [None]
  - Dysstasia [None]
  - Muscle contractions involuntary [None]
  - No therapeutic response [None]
  - Tremor [None]

NARRATIVE: CASE EVENT DATE: 20140923
